FAERS Safety Report 4437311-X (Version None)
Quarter: 2004Q3

REPORT INFORMATION
  Report Type: 
  Country: None (occurrence: None)
  Receive Date: 20040726
  Receipt Date: 20040519
  Transmission Date: 20050211
  Serious: No
  Sender: FDA-Public Use
  Company Number: USA040363214

PATIENT
  Age: 69 Year
  Sex: Female
  Weight: 91 kg

DRUGS (9)
  1. FORTEO [Suspect]
     Indication: OSTEOPOROSIS
     Dates: start: 20040301
  2. SNYTHROID (LEVOTHYROXINE SODIUM) [Concomitant]
  3. POTASSIUM [Concomitant]
  4. PREDNISONE [Concomitant]
  5. ZANTAC [Concomitant]
  6. LASIX [Concomitant]
  7. VITAMIN D [Concomitant]
  8. TUMS (CALCIUM CARBONATE) [Concomitant]
  9. VITAMIN E [Concomitant]

REACTIONS (5)
  - BACK PAIN [None]
  - CHEST PAIN [None]
  - EAR PAIN [None]
  - HEADACHE [None]
  - NECK PAIN [None]
